FAERS Safety Report 8537239-X (Version None)
Quarter: 2012Q3

REPORT INFORMATION
  Report Type: 
  Country: None (occurrence: None)
  Receive Date: 20120725
  Receipt Date: 20120720
  Transmission Date: 20120928
  Serious: Yes (Other)
  Sender: FDA-Public Use
  Company Number: FR-GILEAD-2012-0058330

PATIENT
  Sex: Male

DRUGS (4)
  1. VIREAD [Suspect]
     Indication: HIV INFECTION
     Dosage: 245 MG, QD
     Route: 048
     Dates: start: 20030917, end: 20120606
  2. EPIVIR [Concomitant]
     Dosage: UNK
     Dates: start: 20030917
  3. VIREAD [Suspect]
     Indication: HEPATITIS B
  4. KALETRA [Concomitant]
     Dosage: UNK
     Dates: start: 20030917

REACTIONS (5)
  - PROTEIN URINE PRESENT [None]
  - RENAL IMPAIRMENT [None]
  - HYPOURICAEMIA [None]
  - GLYCOSURIA [None]
  - BLOOD PHOSPHORUS DECREASED [None]
